FAERS Safety Report 5210816-X (Version None)
Quarter: 2006Q4

REPORT INFORMATION
  Report Type: 
  Country: None (occurrence: None)
  Receive Date: 20061101
  Receipt Date: 20060725
  Transmission Date: 20070319
  Serious: No
  Sender: FDA-Public Use
  Company Number: 2006PV018253

PATIENT
  Age: 75 Year
  Sex: Female
  Weight: 67.1324 kg

DRUGS (2)
  1. SYMLIN [Suspect]
     Indication: DIABETES MELLITUS NON-INSULIN-DEPENDENT
     Dosage: 180 MCG;BID;SC
     Route: 058
     Dates: start: 20060601
  2. GLUCOPHAGE [Concomitant]

REACTIONS (4)
  - DYSGEUSIA [None]
  - FATIGUE [None]
  - NAUSEA [None]
  - VOMITING [None]
